FAERS Safety Report 18031724 (Version 2)
Quarter: 2020Q3

REPORT INFORMATION
  Report Type: Spontaneous
  Country: US (occurrence: US)
  Receive Date: 20200716
  Receipt Date: 20200722
  Transmission Date: 20201103
  Serious: Yes (Other)
  Sender: FDA-Public Use
  Company Number: US-PFIZER INC-2020269392

PATIENT
  Age: 25 Year
  Sex: Male
  Weight: 80 kg

DRUGS (4)
  1. FENTANYL. [Concomitant]
     Active Substance: FENTANYL
     Indication: ANAESTHESIA
     Dosage: 0.2 MG
     Route: 042
  2. THIAMYLAL SODIUM [Concomitant]
     Active Substance: THIAMYLAL SODIUM
     Indication: ANAESTHESIA
     Dosage: 100 MG
     Route: 042
  3. PANCURONIUM BROMIDE. [Suspect]
     Active Substance: PANCURONIUM BROMIDE
     Indication: ANAESTHESIA
     Dosage: 8 MG, INJECTION
     Route: 007
  4. DIAZEPAM. [Concomitant]
     Active Substance: DIAZEPAM
     Indication: ANAESTHESIA
     Dosage: 10 MG
     Route: 042

REACTIONS (1)
  - Hyperthermia malignant [Recovered/Resolved]
